FAERS Safety Report 19916411 (Version 2)
Quarter: 2021Q4

REPORT INFORMATION
  Report Type: Other
  Country: US (occurrence: US)
  Receive Date: 20211005
  Receipt Date: 20211014
  Transmission Date: 20220303
  Serious: No
  Sender: FDA-Public Use
  Company Number: US-NEUROCRINE BIOSCIENCES INC.-2021NBI05453

PATIENT

DRUGS (6)
  1. INGREZZA [Suspect]
     Active Substance: VALBENAZINE
     Indication: Tardive dyskinesia
     Dosage: 40 MILLIGRAM, QD
     Route: 048
     Dates: start: 20210823
  2. ESZOPICLONE [Concomitant]
     Active Substance: ESZOPICLONE
     Indication: Insomnia
     Dosage: 1 MILLIGRAM,HS
     Route: 048
  3. BANOPHEN [Concomitant]
     Active Substance: DIPHENHYDRAMINE HYDROCHLORIDE
     Indication: Hyperhidrosis
     Dosage: 50 MILLIGRAM,HS
     Route: 048
  4. LITHIUM [Concomitant]
     Active Substance: LITHIUM
     Indication: Bipolar disorder
     Dosage: 150/300 (UNIT NOT REPORTED) AM/HS
     Route: 048
  5. ZIPRASIDONE [Concomitant]
     Active Substance: ZIPRASIDONE
     Indication: Bipolar disorder
     Dosage: 160 (UNIT NOT REPORTED)  HS
     Route: 048
  6. HYDROXYZINE [Concomitant]
     Active Substance: HYDROXYZINE HYDROCHLORIDE
     Indication: Anxiety
     Dosage: 100 (UNIT NOT REPORTED) BID
     Route: 048

REACTIONS (2)
  - Therapeutic response unexpected [Recovered/Resolved]
  - Somnolence [Not Recovered/Not Resolved]

NARRATIVE: CASE EVENT DATE: 20210825
